FAERS Safety Report 24923711 (Version 2)
Quarter: 2025Q2

REPORT INFORMATION
  Report Type: Report from Study
  Country: TR (occurrence: TR)
  Receive Date: 20250204
  Receipt Date: 20250602
  Transmission Date: 20250717
  Serious: Yes (Death, Other)
  Sender: UCB
  Company Number: TR-UCBSA-2025005576

PATIENT

DRUGS (8)
  1. LEVETIRACETAM [Suspect]
     Active Substance: LEVETIRACETAM
     Indication: Epilepsy
  2. VALPROIC ACID [Suspect]
     Active Substance: VALPROIC ACID
     Indication: Epilepsy
  3. OXCARBAZEPINE [Suspect]
     Active Substance: OXCARBAZEPINE
     Indication: Epilepsy
  4. PHENOBARBITAL [Suspect]
     Active Substance: PHENOBARBITAL
     Indication: Epilepsy
  5. CARBAMAZEPINE [Suspect]
     Active Substance: CARBAMAZEPINE
     Indication: Epilepsy
  6. TOPIRAMATE [Suspect]
     Active Substance: TOPIRAMATE
     Indication: Epilepsy
  7. ETHOSUXIMIDE [Suspect]
     Active Substance: ETHOSUXIMIDE
     Indication: Epilepsy
  8. VIGABATRIN [Suspect]
     Active Substance: VIGABATRIN
     Indication: Epilepsy

REACTIONS (10)
  - Completed suicide [Fatal]
  - Seizure [Unknown]
  - Irritability [Unknown]
  - Psychomotor hyperactivity [Unknown]
  - Somnolence [Unknown]
  - Alopecia [Unknown]
  - Rash [Unknown]
  - Increased appetite [Unknown]
  - Nausea [Unknown]
  - Multiple-drug resistance [Unknown]
